FAERS Safety Report 4380783-X (Version None)
Quarter: 2004Q2

REPORT INFORMATION
  Report Type: 
  Country: None (occurrence: None)
  Receive Date: 20040614
  Receipt Date: 20040602
  Transmission Date: 20050107
  Serious: Yes (Other)
  Sender: FDA-Public Use
  Company Number: US-JNJFOC-20040302109

PATIENT
  Age: 46 Year
  Sex: Male

DRUGS (1)
  1. REMICADE (INFLIXIMAB, RECOMBINANT) LYOPHILIZED POWDER [Suspect]
     Indication: CROHN'S DISEASE
     Dosage: INTRAVENOUS
     Route: 042
     Dates: start: 20030201, end: 20030701

REACTIONS (2)
  - LUPUS-LIKE SYNDROME [None]
  - THROMBOSIS [None]
